FAERS Safety Report 7292358-3 (Version None)
Quarter: 2011Q1

REPORT INFORMATION
  Report Type: 
  Country: None (occurrence: None)
  Receive Date: 20110215
  Receipt Date: 20101223
  Transmission Date: 20110831
  Serious: Yes (Other)
  Sender: FDA-Public Use
  Company Number: US-BAYER-201018260NA

PATIENT
  Sex: Female
  Weight: 73 kg

DRUGS (8)
  1. YAZ [Suspect]
     Indication: PRODUCT USED FOR UNKNOWN INDICATION
     Route: 048
     Dates: start: 20070201, end: 20070901
  2. EFFEXOR XR [Concomitant]
     Indication: DEPRESSION
  3. EFFEXOR XR [Concomitant]
     Indication: MIGRAINE
     Dosage: UNK
     Dates: start: 20000101
  4. ASCORBIC ACID [Concomitant]
     Dosage: UNK
     Dates: start: 20000101
  5. YASMIN [Suspect]
     Indication: ORAL CONTRACEPTION
     Dosage: UNK UNK, QD
     Route: 048
     Dates: start: 20000101, end: 20050101
  6. NEXIUM [Concomitant]
     Indication: IRRITABLE BOWEL SYNDROME
     Dosage: UNK
     Dates: start: 20020101
  7. YASMIN [Suspect]
     Indication: ACNE
  8. LIPITOR [Concomitant]
     Dosage: UNK
     Dates: start: 20000101

REACTIONS (7)
  - PAIN [None]
  - PANCREATITIS [None]
  - DEEP VEIN THROMBOSIS [None]
  - CHOLECYSTITIS [None]
  - CHOLELITHIASIS [None]
  - ABDOMINAL PAIN UPPER [None]
  - GALLBLADDER DISORDER [None]
